FAERS Safety Report 9030646 (Version 2)
Quarter: 2013Q1

REPORT INFORMATION
  Report Type: Spontaneous
  Country: DE (occurrence: DE)
  Receive Date: 20130123
  Receipt Date: 20130207
  Transmission Date: 20140127
  Serious: Yes (Other)
  Sender: FDA-Public Use
  Company Number: DE-ASTRAZENECA-2013SE03106

PATIENT
  Age: 1038 Month
  Sex: Male

DRUGS (1)
  1. BRILIQUE [Suspect]
     Route: 048
     Dates: start: 201203

REACTIONS (2)
  - Polyneuropathy [Not Recovered/Not Resolved]
  - Pruritus generalised [Recovering/Resolving]
